FAERS Safety Report 14097794 (Version 1)
Quarter: 2017Q4

REPORT INFORMATION
  Report Type: Spontaneous
  Country: US (occurrence: US)
  Receive Date: 20171016
  Receipt Date: 20171016
  Transmission Date: 20180321
  Serious: No
  Sender: FDA-Public Use
  Company Number: US-AMGEN-USASP2017011076

PATIENT
  Age: 67 Year
  Sex: Female

DRUGS (1)
  1. PROLIA [Suspect]
     Active Substance: DENOSUMAB
     Indication: PRODUCT USED FOR UNKNOWN INDICATION
     Dosage: UNK
     Route: 065
     Dates: start: 201606

REACTIONS (13)
  - Dizziness [Unknown]
  - Headache [Unknown]
  - Nausea [Unknown]
  - Pain in jaw [Unknown]
  - Back pain [Unknown]
  - Bladder disorder [Unknown]
  - Diarrhoea [Unknown]
  - Fatigue [Unknown]
  - Temporomandibular joint syndrome [Unknown]
  - Abdominal pain upper [Unknown]
  - Neck pain [Unknown]
  - Flatulence [Unknown]
  - Post procedural complication [Unknown]
